FAERS Safety Report 10354675 (Version 1)
Quarter: 2014Q3

REPORT INFORMATION
  Report Type: Spontaneous
  Country: LT (occurrence: None)
  Receive Date: 20140729
  Receipt Date: 20140729
  Transmission Date: 20150326
  Serious: Yes (Hospitalization)
  Sender: FDA-Public Use
  Company Number: 2014SA100443

PATIENT

DRUGS (2)
  1. DIPHENHYDRAMINE [Suspect]
     Active Substance: DIPHENHYDRAMINE
     Indication: PRODUCT USED FOR UNKNOWN INDICATION
  2. BENZODIAZEPINE DERIVATIVES [Suspect]
     Active Substance: BENZODIAZEPINE
     Indication: PRODUCT USED FOR UNKNOWN INDICATION

REACTIONS (2)
  - Toxicity to various agents [None]
  - Brugada syndrome [None]
